FAERS Safety Report 9804175 (Version 1)
Quarter: 2014Q1

REPORT INFORMATION
  Report Type: Spontaneous
  Country: US (occurrence: None)
  Receive Date: 20140106
  Receipt Date: 20140106
  Transmission Date: 20141002
  Serious: Yes (Other)
  Sender: FDA-Public Use
  Company Number: FK201400009

PATIENT
  Age: 58 Year
  Sex: Female

DRUGS (8)
  1. FLUDARABINE [Suspect]
     Indication: B-CELL LYMPHOMA
  2. DEXAMETHASONE [Suspect]
     Indication: B-CELL LYMPHOMA
  3. DOXORUBICIN [Suspect]
     Indication: B-CELL LYMPHOMA
  4. CYCLOPHOSPHAMIDE [Suspect]
     Indication: B-CELL LYMPHOMA
  5. VINCRISTINE [Suspect]
     Indication: B-CELL LYMPHOMA
  6. PREDNISOLONE [Suspect]
     Indication: B-CELL LYMPHOMA
  7. NOVANTRONE [Suspect]
     Indication: B-CELL LYMPHOMA
  8. RITUXIMAB [Suspect]
     Indication: B-CELL LYMPHOMA

REACTIONS (1)
  - Myelodysplastic syndrome [None]
